FAERS Safety Report 15231272 (Version 1)
Quarter: 2018Q3

REPORT INFORMATION
  Report Type: Spontaneous
  Country: FR (occurrence: FR)
  Receive Date: 20180802
  Receipt Date: 20180802
  Transmission Date: 20181010
  Serious: Yes (Hospitalization, Other)
  Sender: FDA-Public Use
  Company Number: FR-AMGEN-FRASP2018104326

PATIENT
  Age: 86 Year
  Sex: Female

DRUGS (2)
  1. PROLIA [Suspect]
     Active Substance: DENOSUMAB
     Indication: OSTEOPOROTIC FRACTURE
     Dosage: UNK
     Route: 065
     Dates: start: 20180113
  2. PROLIA [Suspect]
     Active Substance: DENOSUMAB
     Indication: OSTEOPOROSIS

REACTIONS (1)
  - Femoral neck fracture [Unknown]

NARRATIVE: CASE EVENT DATE: 20180718
